FAERS Safety Report 14149710 (Version 17)
Quarter: 2019Q4

REPORT INFORMATION
  Report Type: Report from Study
  Country: None (occurrence: JP)
  Receive Date: 20171101
  Receipt Date: 20191215
  Transmission Date: 20200122
  Serious: Yes (Death, Hospitalization, Disabling, Other)
  Sender: FDA-Public Use
  Company Number: JP-ABBVIE-17K-087-2146833-00

PATIENT
  Age: 79 Year
  Sex: Female

DRUGS (15)
  1. DUODOPA [Suspect]
     Active Substance: CARBIDOPA\LEVODOPA
     Route: 050
     Dates: start: 20171004, end: 201710
  2. DUODOPA [Suspect]
     Active Substance: CARBIDOPA\LEVODOPA
     Dosage: MD: 11 ML, CD: 2.4 ML/HR X 16 HR, ED: 1 ML/UNIT X 3
     Route: 050
     Dates: start: 20171012, end: 20171012
  3. DUODOPA [Suspect]
     Active Substance: CARBIDOPA\LEVODOPA
     Dosage: MD: 10 ML, CD: 2.2 ML / HR ? 14 HRS
     Route: 050
     Dates: start: 20180724, end: 20190718
  4. DROXIDOPA [Concomitant]
     Active Substance: DROXIDOPA
     Indication: PARKINSON^S DISEASE
     Route: 048
     Dates: start: 20190718
  5. ROTIGOTINE [Concomitant]
     Active Substance: ROTIGOTINE
     Indication: PARKINSON^S DISEASE
     Route: 062
     Dates: start: 20190718
  6. DUODOPA [Suspect]
     Active Substance: CARBIDOPA\LEVODOPA
     Dosage: MD: 10 ML, CD: 3 ML/HR X 16 HR, ED: 2 ML/UNIT X 2
     Route: 050
     Dates: start: 20171015, end: 20171024
  7. RIVASTIGMINE. [Concomitant]
     Active Substance: RIVASTIGMINE
     Indication: PRODUCT USED FOR UNKNOWN INDICATION
     Route: 062
     Dates: start: 20190718
  8. DUODOPA [Suspect]
     Active Substance: CARBIDOPA\LEVODOPA
     Dosage: MD: 8 ML, CD: 2.8 ML/HR X 16 HR, ED: 2 ML/UNIT X 2
     Route: 050
     Dates: start: 20171013, end: 20171013
  9. DUODOPA [Suspect]
     Active Substance: CARBIDOPA\LEVODOPA
     Dosage: MD: 8 ML, CD: 3 ML/HR X 16 HR, ED: 2 ML/UNIT X 2
     Route: 050
     Dates: start: 20171014, end: 20171014
  10. CARBIDOPA HYDRATE - LEVODOPA MIXTURE [Concomitant]
     Indication: PARKINSON^S DISEASE
     Route: 048
     Dates: start: 20171027, end: 20171101
  11. DUODOPA [Suspect]
     Active Substance: CARBIDOPA\LEVODOPA
     Indication: PARKINSON^S DISEASE
     Route: 050
     Dates: start: 20170929, end: 20171004
  12. DUODOPA [Suspect]
     Active Substance: CARBIDOPA\LEVODOPA
     Dosage: MD: 10 ML, CD: 2.8 ML/HR X 13 HR, ED: 2 ML/UNIT X 1
     Route: 050
     Dates: start: 20171025, end: 20171027
  13. DUODOPA [Suspect]
     Active Substance: CARBIDOPA\LEVODOPA
     Dosage: MD: 10 ML, CD: 2.6 ML/HR X 13 HR
     Route: 050
     Dates: start: 20171101, end: 20180724
  14. DROXIDOPA [Concomitant]
     Active Substance: DROXIDOPA
     Indication: ORTHOSTATIC HYPOTENSION
  15. APIXABAN [Concomitant]
     Active Substance: APIXABAN
     Indication: PROPHYLAXIS
     Route: 048
     Dates: start: 20171101, end: 20180724

REACTIONS (12)
  - Unintentional medical device removal [Unknown]
  - Dysphagia [Not Recovered/Not Resolved]
  - Sputum retention [Recovered/Resolved]
  - Fall [Recovered/Resolved]
  - Pulmonary embolism [Recovering/Resolving]
  - Pneumonia aspiration [Recovering/Resolving]
  - Pneumonia aspiration [Fatal]
  - Vocal cord paralysis [Not Recovered/Not Resolved]
  - Anaemia [Recovering/Resolving]
  - Urinary retention [Recovered/Resolved]
  - Productive cough [Unknown]
  - Oxygen saturation decreased [Recovered/Resolved]

NARRATIVE: CASE EVENT DATE: 201710
